FAERS Safety Report 17914656 (Version 2)
Quarter: 2020Q4

REPORT INFORMATION
  Report Type: Report from Study
  Country: GB (occurrence: GB)
  Receive Date: 20200618
  Receipt Date: 20201023
  Transmission Date: 20210113
  Serious: Yes (Other)
  Sender: FDA-Public Use
  Company Number: NVSC2020GB128116

PATIENT
  Sex: Female

DRUGS (3)
  1. METOJECT PEN [Suspect]
     Active Substance: METHOTREXATE
     Indication: PRODUCT USED FOR UNKNOWN INDICATION
     Dosage: 17.5 MG, QW
     Route: 065
  2. ERELZI [Suspect]
     Active Substance: ETANERCEPT-SZZS
     Indication: RHEUMATOID ARTHRITIS
     Dosage: 50 MG, QW
     Route: 058
  3. ERELZI [Suspect]
     Active Substance: ETANERCEPT-SZZS
     Indication: RHEUMATOID ARTHRITIS
     Dosage: 50 MG, QW
     Route: 058

REACTIONS (14)
  - Headache [Unknown]
  - Sleep disorder [Unknown]
  - Arthropathy [Unknown]
  - Gastrointestinal disorder [Unknown]
  - Crying [Unknown]
  - Injection site pain [Unknown]
  - Lower respiratory tract infection [Unknown]
  - Stress [Unknown]
  - Product dose omission issue [Unknown]
  - Arthralgia [Unknown]
  - Poor quality sleep [Unknown]
  - Musculoskeletal discomfort [Unknown]
  - Chest discomfort [Unknown]
  - Chest pain [Unknown]
